FAERS Safety Report 23766729 (Version 3)
Quarter: 2025Q2

REPORT INFORMATION
  Report Type: Spontaneous
  Country: US (occurrence: US)
  Receive Date: 20240422
  Receipt Date: 20250421
  Transmission Date: 20250717
  Serious: Yes (Hospitalization, Other)
  Sender: BRISTOL-MYERS SQUIBB COMPANY
  Company Number: US-BRISTOL-MYERS SQUIBB COMPANY-2024-061861

PATIENT
  Age: 69 Year
  Sex: Male
  Weight: 80.83 kg

DRUGS (7)
  1. REVLIMID [Suspect]
     Active Substance: LENALIDOMIDE
     Indication: Plasma cell myeloma
     Dosage: CYCLIC
     Route: 048
     Dates: start: 20230113, end: 20240418
  2. REVLIMID [Suspect]
     Active Substance: LENALIDOMIDE
     Dosage: D 1-21 Q 28 DAYS
     Route: 048
     Dates: start: 20240418, end: 20240516
  3. REVLIMID [Suspect]
     Active Substance: LENALIDOMIDE
     Dosage: D 1-21 Q 28 DAYS
     Route: 048
     Dates: start: 20240530
  4. REVLIMID [Suspect]
     Active Substance: LENALIDOMIDE
     Dosage: CYCLIC
     Route: 048
     Dates: start: 20230125
  5. DEXAMETHASONE [Suspect]
     Active Substance: DEXAMETHASONE
     Indication: Plasma cell myeloma
     Dates: start: 20230125, end: 20230322
  6. BORTEZOMIB [Suspect]
     Active Substance: BORTEZOMIB
     Indication: Plasma cell myeloma
     Dates: start: 20230125
  7. DARATUMUMAB [Suspect]
     Active Substance: DARATUMUMAB
     Indication: Product used for unknown indication
     Dates: start: 20240315

REACTIONS (10)
  - Neutropenia [Recovered/Resolved]
  - Influenza [Unknown]
  - Cellulitis [Unknown]
  - Hyperkalaemia [Unknown]
  - Decreased appetite [Recovering/Resolving]
  - Acute kidney injury [Unknown]
  - Neuropathy peripheral [Unknown]
  - Diarrhoea [Unknown]
  - Anaemia [Unknown]
  - Thrombocytopenia [Unknown]

NARRATIVE: CASE EVENT DATE: 20230113
